FAERS Safety Report 12536885 (Version 1)
Quarter: 2016Q3

REPORT INFORMATION
  Report Type: Report from Study
  Country: JP (occurrence: JP)
  Receive Date: 20160707
  Receipt Date: 20160707
  Transmission Date: 20161109
  Serious: Yes (Hospitalization)
  Sender: FDA-Public Use
  Company Number: JP-JNJFOC-20140619838

PATIENT
  Age: 29 Year
  Sex: Female
  Weight: 59.7 kg

DRUGS (12)
  1. GENTACIN [Concomitant]
     Active Substance: GENTAMICIN SULFATE
     Route: 061
     Dates: start: 20140622
  2. LAC-B [Concomitant]
     Active Substance: BIFIDOBACTERIUM SPP.
     Indication: CROHN^S DISEASE
     Route: 048
     Dates: start: 20120825
  3. BUFFERIN [Concomitant]
     Active Substance: ASPIRIN
     Indication: NASOPHARYNGITIS
     Route: 048
     Dates: start: 20121110
  4. CALONAL [Concomitant]
     Active Substance: ACETAMINOPHEN
     Route: 048
     Dates: start: 20131216
  5. METHYCOBAL [Concomitant]
     Active Substance: METHYLCOBALAMIN
     Route: 048
     Dates: start: 20140604
  6. NEXIUM [Concomitant]
     Active Substance: ESOMEPRAZOLE MAGNESIUM
     Indication: GASTROINTESTINAL DISORDER THERAPY
     Route: 048
     Dates: start: 20121215
  7. USTEKINUMAB [Suspect]
     Active Substance: USTEKINUMAB
     Indication: CROHN^S DISEASE
     Route: 058
     Dates: start: 20121101
  8. CATLEP [Concomitant]
     Active Substance: INDOMETHACIN
     Indication: DYSMENORRHOEA
     Route: 062
     Dates: start: 20121214
  9. USTEKINUMAB [Suspect]
     Active Substance: USTEKINUMAB
     Indication: CROHN^S DISEASE
     Route: 058
     Dates: start: 20121227
  10. DAIKENTYUTO [Concomitant]
     Active Substance: HERBALS
     Indication: GASTROINTESTINAL DISORDER THERAPY
     Route: 048
  11. BORRAZA-G [Concomitant]
     Active Substance: LIDOCAINE\TRIBENOSIDE
     Route: 061
     Dates: start: 20140311
  12. LOXONIN [Concomitant]
     Active Substance: LOXOPROFEN SODIUM
     Indication: MYALGIA
     Route: 062
     Dates: start: 20121217

REACTIONS (1)
  - Anal fistula infection [Recovered/Resolved]

NARRATIVE: CASE EVENT DATE: 20140614
